FAERS Safety Report 11467568 (Version 14)
Quarter: 2016Q4

REPORT INFORMATION
  Report Type: Report from Study
  Country: BR (occurrence: BR)
  Receive Date: 20150908
  Receipt Date: 20161025
  Transmission Date: 20170206
  Serious: Yes (Death, Hospitalization, Other)
  Sender: FDA-Public Use
  Company Number: PHHY2015BR107497

PATIENT
  Age: 64 Year
  Sex: Female
  Weight: 47 kg

DRUGS (5)
  1. AFINITOR [Suspect]
     Active Substance: EVEROLIMUS
     Indication: BREAST CANCER
     Dosage: 1 DF OF 10 MG, QD
     Route: 048
     Dates: start: 201506
  2. AROMASIN [Concomitant]
     Active Substance: EXEMESTANE
     Indication: BREAST CANCER
     Dosage: 1 DF OF 25 MG, QD
     Route: 048
     Dates: start: 201506
  3. ROSUCOR [Concomitant]
     Active Substance: ROSUVASTATIN CALCIUM
     Indication: BLOOD CHOLESTEROL INCREASED
     Dosage: 1 DF OF 10 MG, QD
     Route: 048
  4. GLIFAGE [Concomitant]
     Active Substance: METFORMIN HYDROCHLORIDE
     Dosage: 1 DF, QD
     Route: 048
  5. GLIFAGE [Concomitant]
     Active Substance: METFORMIN HYDROCHLORIDE
     Indication: DIABETES MELLITUS
     Dosage: 2 DF OF 500 MG, QD
     Route: 048

REACTIONS (29)
  - Wound decomposition [Unknown]
  - Pleural effusion [Recovered/Resolved]
  - Eating disorder [Not Recovered/Not Resolved]
  - Paraesthesia [Recovering/Resolving]
  - Mouth ulceration [Recovering/Resolving]
  - Insomnia [Not Recovered/Not Resolved]
  - Stomatitis [Unknown]
  - Musculoskeletal chest pain [Unknown]
  - Back pain [Unknown]
  - Tongue injury [Recovering/Resolving]
  - Pruritus [Recovered/Resolved]
  - Pyrexia [Unknown]
  - Cough [Unknown]
  - Rash macular [Recovered/Resolved]
  - Weight gain poor [Unknown]
  - Drug ineffective [Unknown]
  - Cataract [Unknown]
  - Hypersensitivity [Recovered/Resolved]
  - Ageusia [Recovering/Resolving]
  - Peripheral swelling [Recovering/Resolving]
  - Carbohydrate antigen 15-3 increased [Unknown]
  - Oral pain [Unknown]
  - Weight decreased [Not Recovered/Not Resolved]
  - Malignant neoplasm progression [Fatal]
  - Bacterial infection [Unknown]
  - Anosmia [Recovering/Resolving]
  - Pleural effusion [Unknown]
  - Decreased appetite [Unknown]
  - Bone pain [Unknown]

NARRATIVE: CASE EVENT DATE: 201507
